FAERS Safety Report 23309367 (Version 1)
Quarter: 2023Q4

REPORT INFORMATION
  Report Type: Spontaneous
  Country: CN (occurrence: CN)
  Receive Date: 20231218
  Receipt Date: 20231218
  Transmission Date: 20240110
  Serious: Yes (Hospitalization, Other)
  Sender: FDA-Public Use
  Company Number: CN-BAYER-2023A176373

PATIENT
  Age: 71 Year
  Sex: Male
  Weight: 68.2 kg

DRUGS (2)
  1. STIVARGA [Suspect]
     Active Substance: REGORAFENIB
     Indication: Rectal cancer
     Dosage: 80 MG, QD
     Route: 048
     Dates: start: 20231031, end: 20231120
  2. TISLELIZUMAB [Suspect]
     Active Substance: TISLELIZUMAB
     Indication: Rectal cancer
     Dosage: 200 MG, QD
     Route: 041
     Dates: start: 20231031, end: 20231031

REACTIONS (9)
  - Autoimmune lung disease [Recovering/Resolving]
  - Pyrexia [Recovering/Resolving]
  - Productive cough [Recovering/Resolving]
  - Interstitial lung disease [Recovering/Resolving]
  - Lymphocyte percentage decreased [None]
  - C-reactive protein increased [None]
  - Interleukin level increased [None]
  - Emphysema [None]
  - Off label use [None]

NARRATIVE: CASE EVENT DATE: 20231031
